FAERS Safety Report 7607584-0 (Version None)
Quarter: 2011Q3

REPORT INFORMATION
  Report Type: 
  Country: None (occurrence: None)
  Receive Date: 20110713
  Receipt Date: 20110705
  Transmission Date: 20111222
  Serious: Yes (Hospitalization)
  Sender: FDA-Public Use
  Company Number: PHHO2011US09923

PATIENT
  Sex: Female
  Weight: 125 kg

DRUGS (2)
  1. FEMARA [Suspect]
     Indication: BREAST CANCER
     Dosage: 2.5 MG, UNK
     Dates: start: 20071112, end: 20110128
  2. FEMARA [Suspect]
     Dosage: 2.5 MG, UNK
     Dates: start: 20110219

REACTIONS (1)
  - APPENDICITIS PERFORATED [None]
